FAERS Safety Report 10921342 (Version 2)
Quarter: 2015Q2

REPORT INFORMATION
  Report Type: Report from Study
  Country: US (occurrence: US)
  Receive Date: 20150317
  Receipt Date: 20150522
  Transmission Date: 20150821
  Serious: Yes (Hospitalization)
  Sender: FDA-Public Use
  Company Number: PHEH2013US027062

PATIENT
  Age: 16 Year
  Sex: Male

DRUGS (2)
  1. TOBI [Suspect]
     Active Substance: TOBRAMYCIN
     Indication: HEART TRANSPLANT
     Dosage: 300 MG, BID
     Route: 055
     Dates: start: 20130502, end: 20130624
  2. TOBI [Suspect]
     Active Substance: TOBRAMYCIN
     Indication: RENAL FAILURE

REACTIONS (2)
  - Renal failure [Unknown]
  - Off label use [Unknown]

NARRATIVE: CASE EVENT DATE: 20130923
